FAERS Safety Report 7903076-X (Version None)
Quarter: 2011Q4

REPORT INFORMATION
  Report Type: 
  Country: None (occurrence: None)
  Receive Date: 20111107
  Receipt Date: 20111028
  Transmission Date: 20120403
  Serious: Yes (Hospitalization)
  Sender: FDA-Public Use
  Company Number: 2011P1009492

PATIENT
  Age: 4 Year
  Sex: Female

DRUGS (1)
  1. ALBENDAZOLE [Suspect]
     Indication: PARASITIC INFECTION PROPHYLAXIS

REACTIONS (9)
  - THIRST [None]
  - LOSS OF CONSCIOUSNESS [None]
  - FEBRILE CONVULSION [None]
  - HEART RATE INCREASED [None]
  - OEDEMA [None]
  - URINARY INCONTINENCE [None]
  - RASH [None]
  - BREATH SOUNDS ABNORMAL [None]
  - HAEMORRHAGE [None]
